FAERS Safety Report 10519993 (Version 1)
Quarter: 2014Q4

REPORT INFORMATION
  Report Type: Spontaneous
  Country: FR (occurrence: FR)
  Receive Date: 20141015
  Receipt Date: 20141015
  Transmission Date: 20150528
  Serious: Yes (Hospitalization)
  Sender: FDA-Public Use
  Company Number: FR-ASTRAZENECA-2014SE76423

PATIENT
  Age: 51 Year
  Sex: Female

DRUGS (7)
  1. CLOMIPRAMINE [Suspect]
     Active Substance: CLOMIPRAMINE
     Route: 048
     Dates: end: 20140710
  2. LEPTICUR [Concomitant]
     Active Substance: TROPATEPINE HYDROCHLORIDE
  3. INEXIUM [Suspect]
     Active Substance: ESOMEPRAZOLE
     Route: 048
  4. DOLIPRANE [Concomitant]
     Active Substance: ACETAMINOPHEN
     Dosage: 500 MG, UNTIL 6 DOSAGE FORMS PER DAY AS REQUIRED
  5. AVLOCARDYL [Suspect]
     Active Substance: PROPRANOLOL HYDROCHLORIDE
     Route: 048
  6. CLOPIXOL [Suspect]
     Active Substance: ZUCLOPENTHIXOL ACETATE
     Dosage: 200 MG/ML ; 1.25 AMPOULE EVERY 28 DAYS
     Route: 030
     Dates: end: 20140721
  7. LOVENOX [Concomitant]
     Active Substance: ENOXAPARIN SODIUM

REACTIONS (5)
  - Fall [Unknown]
  - Confusional state [Recovering/Resolving]
  - Dyskinesia [Recovering/Resolving]
  - Hallucination, visual [Recovering/Resolving]
  - Axonal neuropathy [Unknown]

NARRATIVE: CASE EVENT DATE: 201406
